FAERS Safety Report 15578341 (Version 5)
Quarter: 2021Q1

REPORT INFORMATION
  Report Type: Report from Study
  Country: US (occurrence: US)
  Receive Date: 20181102
  Receipt Date: 20210205
  Transmission Date: 20210419
  Serious: Yes (Death, Life-Threatening, Hospitalization, Other)
  Sender: FDA-Public Use
  Company Number: US-BRISTOL-MYERS SQUIBB COMPANY-BMS-2018-102717

PATIENT
  Age: 80 Year
  Sex: Male
  Weight: 82.2 kg

DRUGS (1)
  1. NIVOLUMAB [Suspect]
     Active Substance: NIVOLUMAB
     Indication: RENAL CELL CARCINOMA
     Dosage: 240 MG, Q2WK
     Route: 042
     Dates: start: 20180906, end: 20180906

REACTIONS (9)
  - Cardiac arrest [Fatal]
  - Sinus bradycardia [Unknown]
  - Respiratory failure [Unknown]
  - Acute kidney injury [Unknown]
  - Hypotension [Unknown]
  - Blood creatinine increased [Unknown]
  - Sepsis [Fatal]
  - Metabolic acidosis [Fatal]
  - Atrioventricular block complete [Unknown]

NARRATIVE: CASE EVENT DATE: 201810
